FAERS Safety Report 18653198 (Version 3)
Quarter: 2021Q3

REPORT INFORMATION
  Report Type: Report from Study
  Country: US (occurrence: US)
  Receive Date: 20201223
  Receipt Date: 20210709
  Transmission Date: 20211014
  Serious: Yes (Hospitalization, Other)
  Sender: FDA-Public Use
  Company Number: US-TAKEDA-US201914944

PATIENT
  Sex: Male
  Weight: 175.51 kg

DRUGS (14)
  1. C1 INHIBITOR (HUMAN) [Suspect]
     Active Substance: HUMAN C1-ESTERASE INHIBITOR
     Indication: IMMUNE SYSTEM DISORDER
     Dosage: 1000 INTERNATIONAL UNIT, 1/WEEK
     Route: 042
     Dates: start: 20150618
  2. C1 INHIBITOR (HUMAN) [Suspect]
     Active Substance: HUMAN C1-ESTERASE INHIBITOR
     Indication: ANGIOEDEMA
     Dosage: 1000 INTERNATIONAL UNIT, 1/WEEK
     Route: 042
     Dates: start: 20180920
  3. C1 INHIBITOR (HUMAN) [Suspect]
     Active Substance: HUMAN C1-ESTERASE INHIBITOR
     Dosage: 2500 INTERNATIONAL UNIT, EVERY 3?4 DAYS
     Route: 042
     Dates: start: 20150618
  4. C1 INHIBITOR (HUMAN) [Suspect]
     Active Substance: HUMAN C1-ESTERASE INHIBITOR
     Indication: IMMUNE SYSTEM DISORDER
     Dosage: 1000 INTERNATIONAL UNIT, 1/WEEK
     Route: 042
     Dates: start: 20150618
  5. C1 INHIBITOR (HUMAN) [Suspect]
     Active Substance: HUMAN C1-ESTERASE INHIBITOR
     Indication: ANGIOEDEMA
     Dosage: 1000 INTERNATIONAL UNIT, 1/WEEK
     Route: 042
     Dates: start: 20180920
  6. C1 INHIBITOR (HUMAN) [Suspect]
     Active Substance: HUMAN C1-ESTERASE INHIBITOR
     Indication: ANGIOEDEMA
     Dosage: 1000 INTERNATIONAL UNIT, 1/WEEK
     Route: 042
     Dates: start: 20180920
  7. C1 INHIBITOR (HUMAN) [Suspect]
     Active Substance: HUMAN C1-ESTERASE INHIBITOR
     Dosage: 2500 INTERNATIONAL UNIT, EVERY 3?4 DAYS
     Route: 042
     Dates: start: 20150618
  8. EPIPEN [Concomitant]
     Active Substance: EPINEPHRINE
     Indication: PRODUCT USED FOR UNKNOWN INDICATION
  9. DIPHENHYDRAMINE. [Concomitant]
     Active Substance: DIPHENHYDRAMINE
     Indication: PRODUCT USED FOR UNKNOWN INDICATION
  10. STERILE WATER [Concomitant]
     Active Substance: WATER
     Indication: PRODUCT USED FOR UNKNOWN INDICATION
  11. C1 INHIBITOR (HUMAN) [Suspect]
     Active Substance: HUMAN C1-ESTERASE INHIBITOR
     Indication: IMMUNE SYSTEM DISORDER
     Dosage: 1000 INTERNATIONAL UNIT, 1/WEEK
     Route: 042
     Dates: start: 20150618
  12. C1 INHIBITOR (HUMAN) [Suspect]
     Active Substance: HUMAN C1-ESTERASE INHIBITOR
     Dosage: 2500 INTERNATIONAL UNIT, EVERY 3?4 DAYS
     Route: 042
     Dates: start: 20150618
  13. SODIUM CHLORIDE. [Concomitant]
     Active Substance: SODIUM CHLORIDE
     Indication: PRODUCT USED FOR UNKNOWN INDICATION
  14. PREDNISONE. [Concomitant]
     Active Substance: PREDNISONE
     Indication: PRODUCT USED FOR UNKNOWN INDICATION

REACTIONS (4)
  - Inappropriate schedule of product administration [Unknown]
  - Pneumonia [Unknown]
  - Hereditary angioedema [Unknown]
  - Infusion site pain [Unknown]
